FAERS Safety Report 6419604-X (Version None)
Quarter: 2009Q4

REPORT INFORMATION
  Report Type: 
  Country: None (occurrence: None)
  Receive Date: 20091029
  Receipt Date: 20091022
  Transmission Date: 20100525
  Serious: Yes (Hospitalization)
  Sender: FDA-Public Use
  Company Number: FR-AVENTIS-200913926FR

PATIENT
  Age: 24 Year
  Sex: Female

DRUGS (3)
  1. LOVENOX [Suspect]
     Indication: PULMONARY EMBOLISM
     Route: 058
     Dates: start: 20090724, end: 20090728
  2. PREVISCAN                          /00789001/ [Suspect]
     Indication: PULMONARY EMBOLISM
     Route: 048
     Dates: start: 20090725, end: 20090728
  3. DIANE [Concomitant]
     Indication: ORAL CONTRACEPTION
     Route: 048

REACTIONS (2)
  - LEUKOPENIA [None]
  - NEUTROPENIA [None]
